FAERS Safety Report 20621563 (Version 1)
Quarter: 2022Q1

REPORT INFORMATION
  Report Type: Spontaneous
  Country: US (occurrence: US)
  Receive Date: 20220322
  Receipt Date: 20220322
  Transmission Date: 20220423
  Serious: No
  Sender: FDA-Public Use
  Company Number: US-ALLERGAN-2121093US

PATIENT
  Sex: Male

DRUGS (1)
  1. LUMIGAN [Suspect]
     Active Substance: BIMATOPROST
     Indication: Glaucoma
     Dosage: 2 GTT
     Route: 047

REACTIONS (4)
  - Visual impairment [Not Recovered/Not Resolved]
  - Impaired driving ability [Unknown]
  - Therapy interrupted [Unknown]
  - Inability to afford medication [Unknown]
